FAERS Safety Report 4700109-9 (Version None)
Quarter: 2005Q1

REPORT INFORMATION
  Report Type: 
  Country: None (occurrence: None)
  Receive Date: 20050124
  Receipt Date: 20050124
  Transmission Date: 20050727
  Serious: No
  Sender: FDA-Public Use
  Company Number: None

PATIENT
  Sex: Male
  Weight: 109.77 kg

DRUGS (12)
  1. TEMOZOLOMIDE [Suspect]
     Dosage: 75 MG/M2/DAY FOR 6 WEEKS
     Dates: start: 20050602
  2. IRINOTECAN [Suspect]
  3. RADIATION [Suspect]
  4. ASPIRIN [Concomitant]
  5. ATENOLOL [Concomitant]
  6. EFFEXOR [Concomitant]
  7. GLUCOPHAGE [Concomitant]
  8. LEVAQUIN [Concomitant]
  9. LIPITOR [Concomitant]
  10. LISONOPRIL [Concomitant]
  11. NEUPOGEN [Concomitant]
  12. POTASSIUM CHLORIDE [Concomitant]

REACTIONS (5)
  - CHILLS [None]
  - DEHYDRATION [None]
  - GRAND MAL CONVULSION [None]
  - HYPONATRAEMIA [None]
  - NEUTROPENIA [None]
